FAERS Safety Report 9238507 (Version 3)
Quarter: 2013Q3

REPORT INFORMATION
  Report Type: Spontaneous
  Country: JP (occurrence: JP)
  Receive Date: 20130418
  Receipt Date: 20130925
  Transmission Date: 20140515
  Serious: Yes (Hospitalization, Other)
  Sender: FDA-Public Use
  Company Number: JP-PFIZER INC-2013118807

PATIENT
  Age: 72 Year
  Sex: Male
  Weight: 59 kg

DRUGS (4)
  1. ALDACTONE A [Suspect]
     Indication: PLEURAL EFFUSION
     Dosage: 50 MG, 1X/DAY
     Route: 048
     Dates: start: 20090715, end: 20100119
  2. ALDACTONE A [Suspect]
     Dosage: 25 MG, 1X/DAY
     Route: 048
     Dates: start: 20100120, end: 20130123
  3. BOSUTINIB [Concomitant]
     Indication: CHRONIC MYELOID LEUKAEMIA
     Dosage: 500 MG, 1X/DAY
     Route: 048
     Dates: start: 20090515
  4. EURODIN [Concomitant]
     Indication: INSOMNIA
     Dosage: 2 MG, AS NEEDED
     Route: 048
     Dates: start: 20081203

REACTIONS (4)
  - Gastritis erosive [Not Recovered/Not Resolved]
  - Macular fibrosis [Not Recovered/Not Resolved]
  - Hyperkalaemia [Unknown]
  - Seborrhoeic keratosis [Not Recovered/Not Resolved]
